FAERS Safety Report 17358772 (Version 2)
Quarter: 2020Q1

REPORT INFORMATION
  Report Type: Spontaneous
  Country: US (occurrence: US)
  Receive Date: 20200201
  Receipt Date: 20200203
  Transmission Date: 20200409
  Serious: No
  Sender: FDA-Public Use
  Company Number: US-BIOGEN-2020BI00834331

PATIENT
  Sex: Female

DRUGS (1)
  1. TYSABRI [Suspect]
     Active Substance: NATALIZUMAB
     Indication: MULTIPLE SCLEROSIS
     Route: 065
     Dates: start: 20181113, end: 20190314

REACTIONS (5)
  - Depression [Unknown]
  - Hyperglycaemia [Unknown]
  - Hypoaesthesia [Unknown]
  - Pain in extremity [Unknown]
  - Headache [Unknown]
